FAERS Safety Report 9439620 (Version 1)
Quarter: 2013Q3

REPORT INFORMATION
  Report Type: Report from Study
  Country: JP (occurrence: JP)
  Receive Date: 20130805
  Receipt Date: 20130805
  Transmission Date: 20140515
  Serious: Yes (Death, Other)
  Sender: FDA-Public Use
  Company Number: JP-ROCHE-1254785

PATIENT
  Sex: 0

DRUGS (1)
  1. TOCILIZUMAB [Suspect]
     Indication: RHEUMATOID ARTHRITIS
     Route: 041

REACTIONS (13)
  - Colon cancer [Fatal]
  - Cerebral infarction [Fatal]
  - Arthritis bacterial [Fatal]
  - Appendicitis [Unknown]
  - Infection [Unknown]
  - Neoplasm malignant [Unknown]
  - Drug ineffective [Unknown]
  - Drug effect decreased [Unknown]
  - Hypersensitivity [Unknown]
  - Angiopathy [Unknown]
  - Interstitial lung disease [Unknown]
  - Rash [Unknown]
  - Neutropenia [Unknown]
